FAERS Safety Report 6905996-1 (Version None)
Quarter: 2010Q3

REPORT INFORMATION
  Report Type: 
  Country: None (occurrence: None)
  Receive Date: 20100804
  Receipt Date: 20100721
  Transmission Date: 20110219
  Serious: Yes (Hospitalization, Other)
  Sender: FDA-Public Use
  Company Number: PHHY2010US49351

PATIENT
  Age: 40 Year
  Sex: Female

DRUGS (5)
  1. VALSARTAN [Suspect]
     Dosage: 80 MG DAILY
  2. FUROSEMIDE [Concomitant]
     Dosage: 20 MG DAILY
  3. CARVEDILOL [Concomitant]
     Dosage: 12.5 MG, BID
  4. TRAZODONE [Concomitant]
     Dosage: 50 MG DAILY
  5. CITALOPRAM [Concomitant]
     Dosage: 20 MG DAILY

REACTIONS (7)
  - CARDIOMYOPATHY [None]
  - CHEST PAIN [None]
  - DIZZINESS [None]
  - DYSPNOEA [None]
  - EJECTION FRACTION DECREASED [None]
  - MITRAL VALVE INCOMPETENCE [None]
  - MYOCARDITIS [None]
